FAERS Safety Report 8555033-0 (Version None)
Quarter: 2012Q3

REPORT INFORMATION
  Report Type: 
  Country: None (occurrence: None)
  Receive Date: 20120731
  Receipt Date: 20120727
  Transmission Date: 20120928
  Serious: Yes (Hospitalization)
  Sender: FDA-Public Use
  Company Number: US-B.I. PHARMACEUTICALS,INC./RIDGEFIELD-2012-BP-17020BP

PATIENT
  Sex: Male

DRUGS (16)
  1. LEVOTHYROXINE SODIUM [Concomitant]
     Indication: THYROID DISORDER
     Dosage: 88 MCG
  2. VENTOLIN HFA [Concomitant]
     Indication: DYSPNOEA
  3. BUMETANIDE [Concomitant]
     Indication: DIURETIC THERAPY
  4. FORADIL [Concomitant]
     Indication: PROSTATOMEGALY
  5. DIOVAN [Concomitant]
     Indication: BLOOD PRESSURE
  6. FLOMAX [Suspect]
     Indication: URINE FLOW DECREASED
     Dosage: 0.4 MG
     Dates: start: 20110101
  7. NITROGLYCERIN [Concomitant]
     Indication: CARDIAC DISORDER
  8. SIMETHICONE [Concomitant]
     Indication: FLATULENCE
  9. METOPROLOL TARTRATE [Concomitant]
     Indication: BLOOD PRESSURE
  10. ASPIRIN [Concomitant]
  11. ALBUTEROL [Concomitant]
     Indication: DYSPNOEA
  12. COUMADIN [Concomitant]
  13. GLIMEPIRIDE [Concomitant]
     Indication: GLUCOSE TOLERANCE IMPAIRED
  14. LIPITOR [Concomitant]
     Indication: BLOOD CHOLESTEROL INCREASED
  15. SPIRIVA [Suspect]
     Indication: CHRONIC OBSTRUCTIVE PULMONARY DISEASE
     Dosage: 18 MCG
     Route: 055
     Dates: start: 20080101
  16. OMEPRAZOLE [Concomitant]
     Indication: GASTROOESOPHAGEAL REFLUX DISEASE

REACTIONS (3)
  - HAEMATURIA [None]
  - URINARY TRACT INFECTION [None]
  - URINE FLOW DECREASED [None]
